FAERS Safety Report 5655085-1 (Version None)
Quarter: 2008Q1

REPORT INFORMATION
  Report Type: 
  Country: None (occurrence: None)
  Receive Date: 20080307
  Receipt Date: 20071121
  Transmission Date: 20080703
  Serious: No
  Sender: FDA-Public Use
  Company Number: A0696630A

PATIENT
  Age: 57 Year
  Sex: Male
  Weight: 106.8 kg

DRUGS (2)
  1. REQUIP [Suspect]
     Indication: RESTLESS LEGS SYNDROME
     Dosage: .05MG AT NIGHT
     Route: 065
     Dates: start: 20070601, end: 20071015
  2. PROVIGIL [Suspect]
     Dosage: 200MG PER DAY
     Route: 048
     Dates: start: 20071002, end: 20071015

REACTIONS (3)
  - DRUG INTERACTION [None]
  - IDEAS OF REFERENCE [None]
  - PARANOIA [None]
